FAERS Safety Report 16834557 (Version 3)
Quarter: 2020Q3

REPORT INFORMATION
  Report Type: Report from Study
  Country: ZA (occurrence: ZA)
  Receive Date: 20190920
  Receipt Date: 20191211
  Transmission Date: 20201104
  Serious: Yes (Hospitalization)
  Sender: FDA-Public Use
  Company Number: ZA-JNJFOC-20190912752

PATIENT
  Age: 54 Year
  Sex: Female
  Weight: 75.6 kg

DRUGS (14)
  1. ESKETAMINE [Suspect]
     Active Substance: ESKETAMINE
     Dosage: MED KIT NO 569134, 569135, 569136?MED KIT NO 569221, 569222, 569223
  2. ERYTHROMYCIN. [Concomitant]
     Active Substance: ERYTHROMYCIN
     Indication: H1N1 INFLUENZA
     Route: 048
     Dates: start: 20190821, end: 20190824
  3. TELITHROMYCIN [Concomitant]
     Active Substance: TELITHROMYCIN
     Indication: H1N1 INFLUENZA
     Dates: start: 20190826, end: 20190830
  4. BETAMETHASONE W/LORATADINE [Concomitant]
     Indication: H1N1 INFLUENZA
     Route: 048
     Dates: start: 20190821, end: 20190824
  5. STILNOX [Concomitant]
     Active Substance: ZOLPIDEM TARTRATE
     Indication: INSOMNIA
     Route: 048
     Dates: start: 20190821
  6. PREDNISONE. [Concomitant]
     Active Substance: PREDNISONE
     Indication: H1N1 INFLUENZA
     Route: 048
     Dates: start: 20190821, end: 20190824
  7. PROBANTHINE [Concomitant]
     Indication: MENOPAUSE
     Route: 048
     Dates: start: 20190301
  8. VENLAFAXINE [Suspect]
     Active Substance: VENLAFAXINE HYDROCHLORIDE
     Indication: DEPRESSION
     Route: 048
     Dates: start: 20180129
  9. ELTROXIN [Concomitant]
     Active Substance: LEVOTHYROXINE
     Indication: HYPOTHYROIDISM
     Route: 048
     Dates: start: 2010
  10. TOPALEX [Concomitant]
     Active Substance: TOPIRAMATE
     Indication: HEADACHE
     Route: 048
     Dates: start: 20180726
  11. FEMIGEL                            /00045401/ [Concomitant]
     Indication: MENOPAUSE
     Route: 061
     Dates: start: 20190301
  12. TAMIFLU [Concomitant]
     Active Substance: OSELTAMIVIR PHOSPHATE
     Indication: H1N1 INFLUENZA
     Route: 048
     Dates: start: 20190821, end: 20190824
  13. ESKETAMINE [Suspect]
     Active Substance: ESKETAMINE
     Indication: DEPRESSION
     Dosage: MOST RECENT DOSE: 09?SEP?2019 MED KIT NUMBER: 28767?2, ?3, ?4
     Dates: start: 20170919
  14. MOTIL                              /00498202/ [Concomitant]
     Indication: H1N1 INFLUENZA
     Route: 048
     Dates: start: 20190821, end: 20190824

REACTIONS (1)
  - Intervertebral disc degeneration [Recovered/Resolved]

NARRATIVE: CASE EVENT DATE: 20190910
